FAERS Safety Report 8403720-7 (Version None)
Quarter: 2012Q2

REPORT INFORMATION
  Report Type: 
  Country: None (occurrence: None)
  Receive Date: 20120601
  Receipt Date: 20110813
  Transmission Date: 20120825
  Serious: No
  Sender: FDA-Public Use
  Company Number: US-NOVEN-11US002980

PATIENT
  Sex: Male
  Weight: 21.315 kg

DRUGS (3)
  1. DAYTRANA [Suspect]
     Indication: ATTENTION DEFICIT/HYPERACTIVITY DISORDER
     Dosage: 15 MG, QD
     Route: 062
     Dates: start: 20110301, end: 20110813
  2. DAYTRANA [Suspect]
     Dosage: 10 MG, QD
     Route: 062
     Dates: start: 20110813
  3. RISPERDAL [Concomitant]
     Indication: AFFECTIVE DISORDER
     Dosage: UNK
     Route: 048
     Dates: start: 20110501

REACTIONS (6)
  - DRUG PRESCRIBING ERROR [None]
  - APPLICATION SITE ERYTHEMA [None]
  - APPLICATION SITE DISCOLOURATION [None]
  - DRUG ADMINISTERED AT INAPPROPRIATE SITE [None]
  - PRODUCT QUALITY ISSUE [None]
  - APPLICATION SITE URTICARIA [None]
